FAERS Safety Report 20822505 (Version 2)
Quarter: 2023Q4

REPORT INFORMATION
  Report Type: Spontaneous
  Country: US (occurrence: US)
  Receive Date: 20220512
  Receipt Date: 20231004
  Transmission Date: 20240109
  Serious: Yes (Other)
  Sender: FDA-Public Use
  Company Number: US-COOPERSURGICAL, INC.-US-2022CPS001495

PATIENT
  Age: 36 Year
  Sex: Female
  Weight: 81.633 kg

DRUGS (5)
  1. PARAGARD T 380A [Suspect]
     Active Substance: COPPER
     Indication: Contraception
     Dosage: UNK
     Route: 015
     Dates: start: 20160406
  2. PLAN B ONE-STEP [Concomitant]
     Active Substance: LEVONORGESTREL
     Indication: Post coital contraception
     Dosage: 1.5 MG
     Route: 048
     Dates: start: 20160406
  3. ZOFRAN [Concomitant]
     Active Substance: ONDANSETRON HYDROCHLORIDE
     Indication: Product used for unknown indication
     Dosage: 4 MG, BID
     Route: 048
     Dates: start: 20150106
  4. MINERALS\VITAMINS [Concomitant]
     Active Substance: MINERALS\VITAMINS
     Indication: Product used for unknown indication
     Dosage: 27 MG, QD
     Route: 048
     Dates: start: 20150106
  5. NORA BE [Concomitant]
     Active Substance: NORETHINDRONE
     Indication: Product used for unknown indication
     Dosage: 0.35 MG, QD
     Route: 048
     Dates: start: 20151012

REACTIONS (19)
  - Road traffic accident [Unknown]
  - Deep vein thrombosis [Unknown]
  - Device breakage [Not Recovered/Not Resolved]
  - Foreign body in reproductive tract [Not Recovered/Not Resolved]
  - Complication of device removal [Not Recovered/Not Resolved]
  - Embedded device [Not Recovered/Not Resolved]
  - Cervical cyst [Unknown]
  - Reproductive complication associated with device [Unknown]
  - Dysuria [Recovered/Resolved]
  - Pain [Unknown]
  - Depression [Recovered/Resolved]
  - Anxiety [Recovered/Resolved]
  - Migraine [Unknown]
  - Dermatitis [Unknown]
  - Tinea versicolour [Unknown]
  - Eczema [Unknown]
  - Menopause [Unknown]
  - Neck pain [Unknown]
  - Back pain [Unknown]

NARRATIVE: CASE EVENT DATE: 20200101
